FAERS Safety Report 5176966-1 (Version None)
Quarter: 2006Q4

REPORT INFORMATION
  Report Type: 
  Country: None (occurrence: None)
  Receive Date: 20061218
  Receipt Date: 20060720
  Transmission Date: 20070319
  Serious: No
  Sender: FDA-Public Use
  Company Number: US-AMGEN-KDL187246

PATIENT
  Sex: Female

DRUGS (1)
  1. ENBREL [Suspect]
     Indication: PSORIASIS
     Route: 058
     Dates: start: 20050201

REACTIONS (6)
  - ALOPECIA [None]
  - DRY EYE [None]
  - EYE INFLAMMATION [None]
  - PRURITUS [None]
  - RASH MACULAR [None]
  - VEIN DISORDER [None]
